FAERS Safety Report 9710241 (Version 3)
Quarter: 2016Q4

REPORT INFORMATION
  Report Type: Spontaneous
  Country: US (occurrence: US)
  Receive Date: 20131126
  Receipt Date: 20161104
  Transmission Date: 20170207
  Serious: Yes (Other)
  Sender: FDA-Public Use
  Company Number: US-JNJFOC-20131111468

PATIENT
  Sex: Female

DRUGS (2)
  1. VINTAFOLIDE [Suspect]
     Active Substance: VINTAFOLIDE
     Indication: OVARIAN CANCER
     Dosage: 3, EVERY 28 DAYS
     Route: 042
  2. DOXORUBICIN HYDROCHLORIDE. [Suspect]
     Active Substance: DOXORUBICIN HYDROCHLORIDE
     Indication: OVARIAN CANCER
     Dosage: EVERY 28 DAYS
     Route: 042

REACTIONS (35)
  - Thrombocytopenia [Unknown]
  - Neutropenia [Unknown]
  - Fatigue [Unknown]
  - Vomiting [Unknown]
  - Pain in extremity [Unknown]
  - Asthenia [Unknown]
  - Palmar-plantar erythrodysaesthesia syndrome [Unknown]
  - Anaemia [Unknown]
  - Pyrexia [Unknown]
  - Back pain [Unknown]
  - Oral pain [Unknown]
  - Myalgia [Unknown]
  - Decreased appetite [Unknown]
  - Blood alkaline phosphatase increased [Unknown]
  - Melanoderma [Unknown]
  - Abdominal distension [Unknown]
  - Peripheral sensory neuropathy [Unknown]
  - Abdominal pain [Unknown]
  - Leukopenia [Unknown]
  - Nausea [Unknown]
  - Constipation [Unknown]
  - Stomatitis [Unknown]
  - Gamma-glutamyltransferase increased [Unknown]
  - Dysphagia [Unknown]
  - Dry skin [Unknown]
  - Blood folate decreased [Unknown]
  - Muscular weakness [Unknown]
  - Rash [Unknown]
  - Erythema [Unknown]
  - Oedema [Unknown]
  - Aphthous ulcer [Unknown]
  - Diarrhoea [Unknown]
  - Oral mucosal exfoliation [Unknown]
  - Balance disorder [Unknown]
  - Alopecia [Unknown]
